FAERS Safety Report 7408267-2 (Version None)
Quarter: 2011Q2

REPORT INFORMATION
  Report Type: 
  Country: None (occurrence: None)
  Receive Date: 20110412
  Receipt Date: 20110303
  Transmission Date: 20111010
  Serious: Yes (Hospitalization, Other)
  Sender: FDA-Public Use
  Company Number: US-BAYER-201038841NA

PATIENT
  Age: 25 Year
  Weight: 86.621 kg

DRUGS (5)
  1. YAZ [Suspect]
     Indication: PRODUCT USED FOR UNKNOWN INDICATION
     Dosage: UNK UNK, QD
     Route: 048
     Dates: start: 20020101, end: 20081201
  2. PHENERGAN [Concomitant]
     Indication: NAUSEA
     Route: 048
  3. LOVENOX [Concomitant]
     Indication: ANTICOAGULANT THERAPY
     Dosage: 100 MG/ML, UNK
     Route: 058
  4. YASMIN [Suspect]
     Indication: PRODUCT USED FOR UNKNOWN INDICATION
     Dosage: UNK UNK, QD
     Route: 048
     Dates: start: 20020101, end: 20081201
  5. VICODIN [Concomitant]
     Indication: PAIN MANAGEMENT
     Route: 048

REACTIONS (3)
  - THROMBOSIS [None]
  - CHOLECYSTITIS CHRONIC [None]
  - GALLBLADDER DISORDER [None]
